FAERS Safety Report 21908185 (Version 1)
Quarter: 2023Q1

REPORT INFORMATION
  Report Type: Spontaneous
  Country: JP (occurrence: JP)
  Receive Date: 20230125
  Receipt Date: 20230125
  Transmission Date: 20230417
  Serious: Yes (Other)
  Sender: FDA-Public Use
  Company Number: JP-MYLANLABS-2023M1008119

PATIENT
  Sex: Female
  Weight: 60 kg

DRUGS (22)
  1. GABAPENTIN [Suspect]
     Active Substance: GABAPENTIN
     Indication: Multiple sclerosis
     Dosage: 200 MILLIGRAM, QD
     Route: 065
  2. PREGABALIN [Suspect]
     Active Substance: PREGABALIN
     Indication: Multiple sclerosis
     Dosage: 125 MILLIGRAM, QD
     Route: 048
  3. PREDNISOLONE [Suspect]
     Active Substance: PREDNISOLONE
     Indication: Multiple sclerosis
     Dosage: 15 MILLIGRAM, QD
     Route: 065
  4. AMLODIPINE BESYLATE [Suspect]
     Active Substance: AMLODIPINE BESYLATE
     Indication: Multiple sclerosis
     Dosage: 5 MILLIGRAM, QD
     Route: 048
  5. CANDESARTAN CILEXETIL [Suspect]
     Active Substance: CANDESARTAN CILEXETIL
     Indication: Multiple sclerosis
     Dosage: 4 MILLIGRAM, QD
     Route: 048
  6. ESOMEPRAZOLE [Suspect]
     Active Substance: ESOMEPRAZOLE
     Indication: Multiple sclerosis
     Dosage: 20 MILLIGRAM, QD
     Route: 048
  7. MAGNESIUM OXIDE [Suspect]
     Active Substance: MAGNESIUM OXIDE
     Indication: Multiple sclerosis
     Dosage: 990 MILLIGRAM, QD
     Route: 048
  8. ATORVASTATIN CALCIUM [Suspect]
     Active Substance: ATORVASTATIN CALCIUM
     Indication: Multiple sclerosis
     Dosage: 5 MILLIGRAM, QD
     Route: 048
  9. CARBAMAZEPINE [Suspect]
     Active Substance: CARBAMAZEPINE
     Indication: Multiple sclerosis
     Dosage: 700 MILLIGRAM, QD
     Route: 048
  10. CARBAMAZEPINE [Suspect]
     Active Substance: CARBAMAZEPINE
     Dosage: 400 MILLIGRAM, QD
     Route: 048
  11. CARBAMAZEPINE [Suspect]
     Active Substance: CARBAMAZEPINE
     Dosage: 200 MILLIGRAM, QD
     Route: 048
  12. CARBAMAZEPINE [Suspect]
     Active Substance: CARBAMAZEPINE
     Dosage: 400 MILLIGRAM, QD
     Route: 048
  13. MEXILETINE HYDROCHLORIDE [Suspect]
     Active Substance: MEXILETINE HYDROCHLORIDE
     Indication: Multiple sclerosis
     Dosage: 200 MILLIGRAM, QD
     Route: 065
  14. ACETAMINOPHEN [Suspect]
     Active Substance: ACETAMINOPHEN
     Indication: Multiple sclerosis
     Dosage: 2400 MILLIGRAM, QD
     Route: 065
  15. DICLOFENAC SODIUM [Suspect]
     Active Substance: DICLOFENAC SODIUM
     Indication: Multiple sclerosis
     Dosage: 25 MILLIGRAM, QD
     Route: 054
  16. BETAMETHASONE [Suspect]
     Active Substance: BETAMETHASONE
     Indication: Multiple sclerosis
     Dosage: 0.5 MILLIGRAM, QD
     Route: 065
  17. AZATHIOPRINE [Suspect]
     Active Substance: AZATHIOPRINE
     Indication: Multiple sclerosis
     Dosage: 50 MILLIGRAM, QD
     Route: 048
  18. ASPIRIN [Suspect]
     Active Substance: ASPIRIN
     Indication: Multiple sclerosis
     Dosage: 100 MILLIGRAM, QD
     Route: 065
  19. LORMETAZEPAM [Suspect]
     Active Substance: LORMETAZEPAM
     Indication: Multiple sclerosis
     Dosage: 0.1 MILLIGRAM, QD
     Route: 048
  20. LUSEOGLIFLOZIN [Suspect]
     Active Substance: LUSEOGLIFLOZIN
     Indication: Multiple sclerosis
     Dosage: 2.5 MILLIGRAM, QD
     Route: 048
  21. INSULIN NOS [Suspect]
     Active Substance: INSULIN NOS
     Indication: Multiple sclerosis
     Dosage: 26 INTERNATIONAL UNIT, QD
     Route: 065
  22. INSULIN NOS [Suspect]
     Active Substance: INSULIN NOS
     Dosage: 12 INTERNATIONAL UNIT, QD
     Route: 065

REACTIONS (6)
  - Spinal compression fracture [Unknown]
  - Duodenal ulcer [Unknown]
  - Herpes zoster [Unknown]
  - Somnolence [Unknown]
  - Dizziness [Recovered/Resolved]
  - Product use in unapproved indication [Unknown]
